FAERS Safety Report 5878869-3 (Version None)
Quarter: 2008Q3

REPORT INFORMATION
  Report Type: 
  Country: None (occurrence: None)
  Receive Date: 20080912
  Receipt Date: 20080903
  Transmission Date: 20090109
  Serious: Yes (Other)
  Sender: FDA-Public Use
  Company Number: US-JNJFOC-20080900948

PATIENT
  Sex: Female

DRUGS (5)
  1. REMICADE [Suspect]
     Route: 042
  2. REMICADE [Suspect]
     Indication: PSORIATIC ARTHROPATHY
     Route: 042
  3. PREDNISONE TAB [Concomitant]
     Indication: PSORIATIC ARTHROPATHY
  4. ARAVA [Concomitant]
     Indication: PSORIATIC ARTHROPATHY
  5. HRT [Concomitant]
     Indication: HYSTERECTOMY

REACTIONS (11)
  - BACK PAIN [None]
  - CHEST DISCOMFORT [None]
  - DERMATITIS BULLOUS [None]
  - DRUG INEFFECTIVE [None]
  - FATIGUE [None]
  - HEADACHE [None]
  - HOT FLUSH [None]
  - HYPOAESTHESIA [None]
  - HYPOTENSION [None]
  - MUSCULAR WEAKNESS [None]
  - TREMOR [None]
